FAERS Safety Report 14958356 (Version 1)
Quarter: 2018Q2

REPORT INFORMATION
  Report Type: Spontaneous
  Country: US (occurrence: US)
  Receive Date: 20180531
  Receipt Date: 20180531
  Transmission Date: 20180711
  Serious: Yes (Other)
  Sender: FDA-Public Use
  Company Number: US-MYLANLABS-2018M1035907

PATIENT
  Age: 6 Month
  Sex: Female

DRUGS (4)
  1. HYDROCORTISONE. [Suspect]
     Active Substance: HYDROCORTISONE
     Indication: ADRENOGENITAL SYNDROME
     Dosage: THREE TIMES DAILY; STARTED AT DAY 2 OF LIFE TILL 6 WEEKS OF AGE
     Route: 065
  2. SODIUM CHLORIDE. [Concomitant]
     Active Substance: SODIUM CHLORIDE
     Indication: ADRENOGENITAL SYNDROME
     Route: 065
  3. FLUDROCORTISONE [Concomitant]
     Active Substance: FLUDROCORTISONE
     Indication: ADRENOGENITAL SYNDROME
     Route: 065
  4. HYDROCORTISONE. [Suspect]
     Active Substance: HYDROCORTISONE
     Indication: ADRENOGENITAL SYNDROME
     Dosage: GIVEN AS CRUSHED AND WEIGHED HYDROCORTISONE TABLETS IN CAPSULES FROM 6 WEEKS OF AGE; 5MG PER DAY ...
     Route: 065

REACTIONS (3)
  - Overdose [Recovered/Resolved]
  - Cushing^s syndrome [Recovered/Resolved]
  - Product preparation error [Recovered/Resolved]
